FAERS Safety Report 25263613 (Version 3)
Quarter: 2025Q2

REPORT INFORMATION
  Report Type: Spontaneous
  Country: FR (occurrence: FR)
  Receive Date: 20250502
  Receipt Date: 20250627
  Transmission Date: 20250717
  Serious: Yes (Other)
  Sender: FERRING
  Company Number: FR-FERRINGPH-2025FE02080

PATIENT

DRUGS (1)
  1. GONADORELIN [Suspect]
     Active Substance: GONADORELIN
     Indication: Product used for unknown indication
     Route: 065
     Dates: start: 2025

REACTIONS (3)
  - Pyrexia [Recovered/Resolved]
  - Injection site abscess [Recovered/Resolved]
  - Injection site erythema [Recovered/Resolved]

NARRATIVE: CASE EVENT DATE: 20250418
